FAERS Safety Report 23273057 (Version 1)
Quarter: 2023Q4

REPORT INFORMATION
  Report Type: Report from Study
  Country: US (occurrence: US)
  Receive Date: 20231207
  Receipt Date: 20231207
  Transmission Date: 20240110
  Serious: Yes (Other)
  Sender: FDA-Public Use
  Company Number: US-002147023-NVSC2023US255763

PATIENT
  Age: 62 Year
  Sex: Female

DRUGS (1)
  1. ENTRESTO [Suspect]
     Active Substance: SACUBITRIL\VALSARTAN
     Indication: Product used for unknown indication
     Dosage: UNK
     Route: 065

REACTIONS (13)
  - Blindness unilateral [Unknown]
  - Pruritus [Unknown]
  - Vertigo [Unknown]
  - Dizziness [Unknown]
  - Decreased appetite [Unknown]
  - Mobility decreased [Unknown]
  - Abdominal discomfort [Unknown]
  - Pollakiuria [Unknown]
  - Oedema [Unknown]
  - Dyspnoea [Unknown]
  - Nail bed bleeding [Unknown]
  - Scratch [Unknown]
  - Gait disturbance [Unknown]
